FAERS Safety Report 5331627-0 (Version None)
Quarter: 2007Q2

REPORT INFORMATION
  Report Type: 
  Country: None (occurrence: None)
  Receive Date: 20070522
  Receipt Date: 20070511
  Transmission Date: 20071010
  Serious: Yes (Other)
  Sender: FDA-Public Use
  Company Number: CH-PFIZER INC-2007038911

PATIENT
  Sex: Male
  Weight: 51 kg

DRUGS (16)
  1. ALDACTONE [Suspect]
     Indication: CARDIAC FAILURE CONGESTIVE
     Route: 048
     Dates: start: 20061025, end: 20061105
  2. ALDACTONE [Suspect]
     Route: 048
     Dates: start: 20061120, end: 20061123
  3. VENOFER [Suspect]
     Indication: ANAEMIA
     Route: 042
     Dates: start: 20061102, end: 20061105
  4. LISINOPRIL [Suspect]
     Route: 048
  5. LISINOPRIL [Suspect]
     Route: 048
  6. ROCEPHIN [Suspect]
     Indication: PYELONEPHRITIS
     Dates: start: 20060929, end: 20061008
  7. ROCEPHIN [Suspect]
     Dates: start: 20061012, end: 20061018
  8. DIGOXIN [Concomitant]
     Dosage: DAILY DOSE:.125MG
     Route: 048
  9. NEXIUM [Concomitant]
     Dosage: DAILY DOSE:20MG
     Route: 048
  10. NEXIUM [Concomitant]
     Dosage: DAILY DOSE:20MG
     Route: 048
  11. SINTROM [Concomitant]
     Route: 048
  12. ASPIRIN [Concomitant]
     Dosage: DAILY DOSE:100MG
     Route: 048
     Dates: start: 20060929, end: 20061006
  13. MOVICOL [Concomitant]
  14. LAXOBERON [Concomitant]
  15. VITAMINS [Concomitant]
     Indication: HYPOCHROMIC ANAEMIA
     Dates: start: 20061102
  16. VITARUBIN [Concomitant]

REACTIONS (2)
  - HENOCH-SCHONLEIN PURPURA [None]
  - RENAL FAILURE [None]
